FAERS Safety Report 8025962-5 (Version None)
Quarter: 2012Q1

REPORT INFORMATION
  Report Type: 
  Country: None (occurrence: None)
  Receive Date: 20120105
  Receipt Date: 20110930
  Transmission Date: 20120608
  Serious: No
  Sender: FDA-Public Use
  Company Number: US-ABBOTT-11P-163-0859820-00

PATIENT
  Sex: Female

DRUGS (2)
  1. SYNTHROID [Suspect]
     Dates: start: 20110914
  2. SYNTHROID [Suspect]
     Indication: HYPOTHYROIDISM
     Dates: start: 20110701, end: 20110914

REACTIONS (4)
  - HYPOTHYROIDISM [None]
  - DYSGEUSIA [None]
  - HYPERTHYROIDISM [None]
  - VOMITING [None]
